FAERS Safety Report 7491432-6 (Version None)
Quarter: 2011Q2

REPORT INFORMATION
  Report Type: 
  Country: None (occurrence: None)
  Receive Date: 20110519
  Receipt Date: 20110506
  Transmission Date: 20111010
  Serious: Yes (Other)
  Sender: FDA-Public Use
  Company Number: PHHY2011DE39669

PATIENT
  Sex: Male

DRUGS (4)
  1. PAMIDRONATE DISODIUM [Suspect]
     Dosage: UNK
     Route: 042
     Dates: start: 20000401, end: 20020801
  2. ZOLEDRONIC ACID [Suspect]
     Dosage: UNK
     Route: 042
     Dates: start: 20020801, end: 20040701
  3. CHEMOTHERAPEUTICS NOS [Concomitant]
  4. CORTICOSTEROID NOS [Concomitant]

REACTIONS (1)
  - OSTEONECROSIS OF JAW [None]
